FAERS Safety Report 7318416-2 (Version None)
Quarter: 2011Q1

REPORT INFORMATION
  Report Type: 
  Country: None (occurrence: None)
  Receive Date: 20110228
  Receipt Date: 20110217
  Transmission Date: 20110831
  Serious: Yes (Other)
  Sender: FDA-Public Use
  Company Number: MX-ELI_LILLY_AND_COMPANY-MX201101003702

PATIENT
  Age: 79 Year
  Sex: Female
  Weight: 58 kg

DRUGS (6)
  1. CORTISONE [Concomitant]
     Indication: RHEUMATOID ARTHRITIS
     Dosage: UNK, UNKNOWN
     Route: 065
  2. FORTEO [Suspect]
     Indication: OSTEOPOROSIS
     Dosage: UNK UNK, DAILY (1/D)
     Route: 058
     Dates: start: 20090901, end: 20091201
  3. RIVOTRIL [Concomitant]
     Indication: ANXIOLYTIC THERAPY
     Dosage: UNK, UNKNOWN
     Route: 065
  4. PAXIL [Concomitant]
     Indication: DEPRESSION
     Dosage: UNK, UNKNOWN
     Route: 065
  5. RANITIDINE [Concomitant]
     Indication: GASTRIC DISORDER
     Dosage: UNK, UNKNOWN
     Route: 065
  6. FORTEO [Suspect]
     Dosage: UNK, UNKNOWN
     Route: 065
     Dates: start: 20110115

REACTIONS (4)
  - HIP FRACTURE [None]
  - INFLAMMATION [None]
  - FALL [None]
  - PAIN [None]
